FAERS Safety Report 13287475 (Version 2)
Quarter: 2019Q4

REPORT INFORMATION
  Report Type: Spontaneous
  Country: US (occurrence: US)
  Receive Date: 20170302
  Receipt Date: 20191115
  Transmission Date: 20200122
  Serious: No
  Sender: FDA-Public Use
  Company Number: US-ELI_LILLY_AND_COMPANY-US201702011160

PATIENT
  Age: 68 Year
  Sex: Female

DRUGS (7)
  1. HUMULIN 70/30 [Suspect]
     Active Substance: INSULIN HUMAN
     Dosage: 6 IU, EACH MORNING
     Route: 065
     Dates: start: 20170125
  2. HUMULIN 70/30 [Suspect]
     Active Substance: INSULIN HUMAN
     Dosage: 2 IU, EACH EVENING
     Route: 065
     Dates: start: 20170125
  3. HUMULIN 70/30 [Suspect]
     Active Substance: INSULIN HUMAN
     Dosage: 6 IU, EACH MORNING
     Route: 065
     Dates: start: 20170227
  4. HUMULIN 70/30 [Suspect]
     Active Substance: INSULIN HUMAN
     Dosage: 2 IU, EACH EVENING
     Route: 065
     Dates: start: 20170227
  5. HUMULIN 70/30 [Suspect]
     Active Substance: INSULIN HUMAN
     Indication: TYPE 2 DIABETES MELLITUS
     Dosage: 3 IU, EACH MORNING
     Route: 065
     Dates: start: 20170125
  6. HUMULIN 70/30 [Suspect]
     Active Substance: INSULIN HUMAN
     Dosage: 4 U, EACH MORNING
     Route: 065
     Dates: start: 20170227
  7. HUMULIN 70/30 [Suspect]
     Active Substance: INSULIN HUMAN
     Dosage: 5 IU, EACH MORNING
     Route: 065
     Dates: start: 20170125

REACTIONS (7)
  - Sleep disorder due to a general medical condition [Recovered/Resolved]
  - Feeling cold [Recovered/Resolved]
  - Incorrect product administration duration [Unknown]
  - Product dose omission [Unknown]
  - Blood glucose decreased [Recovered/Resolved]
  - Blood glucose increased [Not Recovered/Not Resolved]
  - Nasopharyngitis [Not Recovered/Not Resolved]

NARRATIVE: CASE EVENT DATE: 20170125
